FAERS Safety Report 7865834-X (Version None)
Quarter: 2011Q4

REPORT INFORMATION
  Report Type: 
  Country: None (occurrence: None)
  Receive Date: 20111028
  Receipt Date: 20110307
  Transmission Date: 20120403
  Serious: No
  Sender: FDA-Public Use
  Company Number: US-GLAXOSMITHKLINE-A0916960A

PATIENT
  Age: 70 Year
  Sex: Female

DRUGS (7)
  1. ADVAIR DISKUS 100/50 [Suspect]
     Indication: BRONCHITIS CHRONIC
     Dosage: 1PUFF TWICE PER DAY
     Route: 055
     Dates: start: 20100201, end: 20110306
  2. LOTREL [Concomitant]
  3. FISH OIL [Concomitant]
  4. FIBER [Concomitant]
  5. OTC VITAMINS [Concomitant]
  6. CALCIUM CARBONATE [Concomitant]
  7. ZOCOR [Concomitant]

REACTIONS (1)
  - GENITAL RASH [None]
